FAERS Safety Report 9993409 (Version 1)
Quarter: 2014Q1

REPORT INFORMATION
  Report Type: Spontaneous
  Country: GB (occurrence: GB)
  Receive Date: 20140310
  Receipt Date: 20140310
  Transmission Date: 20141002
  Serious: Yes (Death)
  Sender: FDA-Public Use
  Company Number: GB-WATSON-2014-03883

PATIENT
  Age: 65 Year
  Sex: Male

DRUGS (8)
  1. CISPLATIN (UNKNOWN) [Suspect]
     Indication: CASTLEMAN^S DISEASE
     Dosage: 1 CYCLICAL - DOSAGE FORM: UNSPECIFIED
     Route: 065
  2. CYCLOPHOSPHAMIDE (UNKNOWN) [Suspect]
     Indication: CASTLEMAN^S DISEASE
     Dosage: 1 CYCLICAL - DOSAGE FORM: UNSPECIFIED
     Route: 065
  3. CYTARABINE [Suspect]
     Indication: CASTLEMAN^S DISEASE
     Dosage: 1 CYCLICAL, DOSAGE FORM: UNSPECIFIED
     Route: 065
  4. DEXAMETHASONE (WATSON LABORATORIES) [Suspect]
     Indication: CASTLEMAN^S DISEASE
     Dosage: 1 CYCLICAL, DOSAGE FORM: UNSPECIFIED
     Route: 065
  5. DOXORUBICIN (UNKNOWN) [Suspect]
     Indication: CASTLEMAN^S DISEASE
     Dosage: 1 CYCLICAL, DOSAGE FORM: LIPOSOME INJECTION
     Route: 042
  6. PREDNISONE (UNKNOWN) [Suspect]
     Indication: CASTLEMAN^S DISEASE
     Dosage: 1 CYCLICAL, DOSAGE FORM: UNSPECIFIED
     Route: 065
  7. VINCRISTINE (UNKNOWN) [Suspect]
     Indication: CASTLEMAN^S DISEASE
     Dosage: 1 CYCLICAL, DOSAGE FORM: UNSPECIFIED
     Route: 065
  8. RITUXIMAB [Suspect]
     Indication: CASTLEMAN^S DISEASE
     Dosage: 1 CYCLICAL, DOSAGE FORM: UNSPECIFIED, PART OF R-CHOP AND R-DHAP
     Route: 065

REACTIONS (2)
  - Castleman^s disease [Fatal]
  - Off label use [Unknown]
